FAERS Safety Report 19834604 (Version 2)
Quarter: 2021Q4

REPORT INFORMATION
  Report Type: Spontaneous
  Country: SE (occurrence: SE)
  Receive Date: 20210915
  Receipt Date: 20211008
  Transmission Date: 20220304
  Serious: Yes (Death)
  Sender: FDA-Public Use
  Company Number: None

PATIENT
  Age: 80 Year
  Sex: Female

DRUGS (6)
  1. ZOMETA [Suspect]
     Active Substance: ZOLEDRONIC ACID
     Indication: Osteoporosis
     Dosage: 5 MG, 100 ML
     Route: 065
     Dates: start: 2017
  2. ZOMETA [Suspect]
     Active Substance: ZOLEDRONIC ACID
     Dosage: 4 MG
     Route: 065
     Dates: start: 20180507, end: 20210501
  3. METHOTREXATE [Concomitant]
     Active Substance: METHOTREXATE
     Indication: Product used for unknown indication
     Dosage: 10 MG, QW
     Route: 065
  4. SODIUM PICOSULFATE [Concomitant]
     Active Substance: SODIUM PICOSULFATE
     Indication: Product used for unknown indication
     Dosage: 7.5 MG/ML, PRN
     Route: 048
     Dates: start: 20180504
  5. CLOBETASOL [Concomitant]
     Active Substance: CLOBETASOL
     Indication: Product used for unknown indication
     Dosage: 1 APPLICATION TO THE EVENING FOR 2 WEEKS. THEN 2 NIGHTS PER WEEK
     Route: 065
     Dates: start: 20180504
  6. UREA [Concomitant]
     Active Substance: UREA
     Indication: Product used for unknown indication
     Dosage: 5 %
     Route: 065
     Dates: start: 20180504

REACTIONS (1)
  - Osteonecrosis of jaw [Fatal]

NARRATIVE: CASE EVENT DATE: 20210630
